FAERS Safety Report 7068729-7 (Version None)
Quarter: 2010Q4

REPORT INFORMATION
  Report Type: 
  Country: None (occurrence: None)
  Receive Date: 20101028
  Receipt Date: 20101025
  Transmission Date: 20110411
  Serious: Yes (Death)
  Sender: FDA-Public Use
  Company Number: JP-PFIZER INC-2010134882

PATIENT
  Age: 86 Year
  Sex: Female

DRUGS (3)
  1. LINEZOLID [Suspect]
     Indication: PNEUMONIA
     Dosage: 600 MG, 2X/DAY
     Route: 041
     Dates: start: 20100112
  2. OMEPRAL [Concomitant]
     Dosage: UNK
     Route: 042
  3. SOLU-CORTEF [Concomitant]
     Dosage: UNK
     Route: 042
     Dates: start: 20100108

REACTIONS (1)
  - DEATH [None]
